FAERS Safety Report 18026091 (Version 1)
Quarter: 2020Q3

REPORT INFORMATION
  Report Type: Spontaneous
  Country: US (occurrence: US)
  Receive Date: 20200715
  Receipt Date: 20200715
  Transmission Date: 20201103
  Serious: No
  Sender: FDA-Public Use
  Company Number: US-TEVA-2020-US-1800976

PATIENT
  Sex: Female

DRUGS (1)
  1. CLONAZEPAM. [Suspect]
     Active Substance: CLONAZEPAM
     Dosage: ONE TABLET AND CUT IT IN TO HALVES OR QUARTERS AND TAKE 1 AND 1/4 TABLETS
     Route: 065

REACTIONS (4)
  - Drug ineffective [Unknown]
  - Middle insomnia [Unknown]
  - Wrong technique in product usage process [Unknown]
  - Insomnia [Unknown]
